FAERS Safety Report 19893410 (Version 3)
Quarter: 2023Q1

REPORT INFORMATION
  Report Type: Report from Study
  Country: PT (occurrence: PT)
  Receive Date: 20210929
  Receipt Date: 20230321
  Transmission Date: 20230417
  Serious: Yes (Other)
  Sender: FDA-Public Use
  Company Number: PT-CELLTRION INC.-2021PT012957

PATIENT

DRUGS (39)
  1. TRASTUZUMAB [Suspect]
     Active Substance: TRASTUZUMAB
     Indication: HER2 positive breast cancer
     Dosage: 500 MG, EVERY 3 WEEKS (MOST RECENT DOSE PRIOR TO THE EVENT: 07/JAN/2021)
     Route: 042
     Dates: start: 20190308, end: 20190308
  2. TRASTUZUMAB [Suspect]
     Active Substance: TRASTUZUMAB
     Dosage: 370 MG, EVERY 3 WEEKS
     Route: 042
     Dates: start: 20190408, end: 20190704
  3. CAPECITABINE [Suspect]
     Active Substance: CAPECITABINE
     Indication: HER2 positive breast cancer
     Dosage: TWICE DAILY FOR 2 WEEKS 1450 TWICE DAILY
     Route: 048
     Dates: start: 20210201, end: 20210214
  4. CAPECITABINE [Suspect]
     Active Substance: CAPECITABINE
     Dosage: TWICE DAILY FOR 2 WEEKS 2000 TWICE DAILY
     Route: 048
     Dates: start: 20210318, end: 20210421
  5. CAPECITABINE [Suspect]
     Active Substance: CAPECITABINE
     Dosage: TWICE DAILY FOR 2 WEEKS 1650 TWICE DAILY
     Route: 048
     Dates: start: 20210430, end: 20210614
  6. DOCETAXEL [Suspect]
     Active Substance: DOCETAXEL
     Indication: HER2 positive breast cancer
     Dosage: 120 MG, EVERY 3 WEEKS (DATE OF MOST RECENT DOSE: 04/JUL/2019)
     Route: 042
     Dates: start: 20190308
  7. ADO-TRASTUZUMAB EMTANSINE [Suspect]
     Active Substance: ADO-TRASTUZUMAB EMTANSINE
     Indication: HER2 positive breast cancer
     Dosage: 220 MG, EVERY 3 WEEKS
     Route: 042
     Dates: start: 20190726, end: 20201119
  8. PERTUZUMAB [Suspect]
     Active Substance: PERTUZUMAB
     Indication: HER2 positive breast cancer
     Dosage: 840 MG, EVERY 3 WEEKS (MOST RECENT DOSE PRIOR TO THE EVENT: 08/APR/2019)
     Route: 042
     Dates: start: 20190308, end: 20190308
  9. PERTUZUMAB [Suspect]
     Active Substance: PERTUZUMAB
     Dosage: 420 MG, EVERY 3 WEEKS
     Route: 042
     Dates: start: 20190408, end: 20190704
  10. HYALURONIDASE (HUMAN RECOMBINANT)\TRASTUZUMAB [Suspect]
     Active Substance: HYALURONIDASE (HUMAN RECOMBINANT)\TRASTUZUMAB
     Indication: HER2 positive breast cancer
     Dosage: 600 MG, EVERY 3 WEEKS
     Route: 058
     Dates: start: 20210107, end: 20220203
  11. FUROSEMIDE [Concomitant]
     Active Substance: FUROSEMIDE
     Dosage: ONGOING = CHECKED, PHARMACEUTICAL DOSE FORM (FREE TEXT): UNKNOWN
     Dates: start: 20190429
  12. DIAZEPAM [Concomitant]
     Active Substance: DIAZEPAM
     Dosage: ONGOING = CHECKED, PHARMACEUTICAL DOSE FORM (FREE TEXT): UNKNOWN
     Dates: start: 20210107
  13. FLUCONAZOLE [Concomitant]
     Active Substance: FLUCONAZOLE
     Indication: Onycholysis
     Dosage: ONGOING = NOT CHECKED, PHARMACEUTICAL DOSE FORM (FREE TEXT): UNKNOWN
     Dates: start: 20210429, end: 20210515
  14. CLEMASTINE [Concomitant]
     Active Substance: CLEMASTINE
     Dosage: ONGOING = CHECKED,PHARMACEUTICAL DOSE FORM (FREE TEXT): UNKNOWN
     Dates: start: 20190308
  15. ESCITALOPRAM [Concomitant]
     Active Substance: ESCITALOPRAM OXALATE
     Dosage: ONGOING = CHECKED, PHARMACEUTICAL DOSE FORM (FREE TEXT): UNKNOWN
     Dates: start: 20180305
  16. FUSIDIC ACID [Concomitant]
     Active Substance: FUSIDIC ACID
     Indication: Onycholysis
     Dosage: ONGOING = NOT CHECKED, PHARMACEUTICAL DOSE FORM (FREE TEXT): UNKNOWN
     Dates: start: 20210429, end: 20210524
  17. NEUROBION [Concomitant]
     Active Substance: CYANOCOBALAMIN\PYRIDOXINE\THIAMINE
     Indication: Neuropathy peripheral
     Dosage: ONGOING = CHECKED, PHARMACEUTICAL DOSE FORM (FREE TEXT): UNKNOWN
     Dates: start: 20210429
  18. BISOPROLOL [Concomitant]
     Active Substance: BISOPROLOL
     Dosage: ONGOING = CHECKED, PHARMACEUTICAL DOSE FORM (FREE TEXT): UNKNOWN
  19. IRBESARTAN [Concomitant]
     Active Substance: IRBESARTAN
     Dosage: ONGOING = CHECKED, PHARMACEUTICAL DOSE FORM (FREE TEXT): UNKNOWN
  20. ACETAMINOPHEN\THIOCOLCHICOSIDE [Concomitant]
     Active Substance: ACETAMINOPHEN\THIOCOLCHICOSIDE
     Dosage: ONGOING = CHECKED, PHARMACEUTICAL DOSE FORM (FREE TEXT): UNKNOWN
     Dates: start: 20200513
  21. METHYLPREDNISOLONE [Concomitant]
     Active Substance: METHYLPREDNISOLONE
     Dosage: ONGOING = CHECKED, PHARMACEUTICAL DOSE FORM (FREE TEXT): UNKNOWN
     Dates: start: 20190308
  22. ATORVASTATIN [Concomitant]
     Active Substance: ATORVASTATIN
     Dosage: ONGOING = CHECKED, PHARMACEUTICAL DOSE FORM (FREE TEXT): UNKNOWN
  23. TRAMADOL [Concomitant]
     Active Substance: TRAMADOL
     Dosage: ONGOING = NOT CHECKED, PHARMACEUTICAL DOSE FORM (FREE TEXT): UNKNOWN
     Dates: start: 20190329
  24. DESLORATADINE [Concomitant]
     Active Substance: DESLORATADINE
     Dosage: ONGOING = CHECKED, PHARMACEUTICAL DOSE FORM (FREE TEXT): UNKNOWN
  25. RIVOTRIL [Concomitant]
     Active Substance: CLONAZEPAM
     Dosage: ONGOING = CHECKED, PHARMACEUTICAL DOSE FORM (FREE TEXT): UNKNOWN
  26. HYDROXYZINE [Concomitant]
     Active Substance: HYDROXYZINE HYDROCHLORIDE
     Dosage: ONGOING = CHECKED, PHARMACEUTICAL DOSE FORM (FREE TEXT): UNKNOWN
     Dates: start: 20190726
  27. ZOLEDRONIC ACID [Concomitant]
     Active Substance: ZOLEDRONIC ACID
     Dosage: ONGOING = CHECKED, PHARMACEUTICAL DOSE FORM (FREE TEXT): UNKNOWN
     Dates: start: 20200401
  28. PREDNISOLONE [Concomitant]
     Active Substance: PREDNISOLONE
     Dosage: ONGOING = CHECKED, PHARMACEUTICAL DOSE FORM (FREE TEXT): UNKNOWN
     Dates: start: 20190429
  29. LOPERAMIDE [Concomitant]
     Active Substance: LOPERAMIDE
     Dosage: ONGOING = CHECKED, PHARMACEUTICAL DOSE FORM (FREE TEXT): UNKNOWN
     Dates: start: 20210129
  30. NYSTATIN [Concomitant]
     Active Substance: NYSTATIN
     Dosage: ONGOING = CHECKED; PHARMACEUTICAL DOSE FORM (FREE TEXT): UNKNOWN
     Dates: start: 20190521
  31. TRAZODONE [Concomitant]
     Active Substance: TRAZODONE HYDROCHLORIDE
     Dosage: ONGOING = CHECKED. PHARMACEUTICAL DOSE FORM (FREE TEXT): UNKNOWN
  32. LEVETIRACETAM [Concomitant]
     Active Substance: LEVETIRACETAM
     Dosage: ONGOING = CHECKED, PHARMACEUTICAL DOSE FORM (FREE TEXT): UNKNOWN
     Dates: start: 20210129
  33. METOCLOPRAMIDE [Concomitant]
     Active Substance: METOCLOPRAMIDE
     Dosage: ONGOING = CHECKED, PHARMACEUTICAL DOSE FORM (FREE TEXT): UNKNOWN
     Dates: start: 20210211
  34. METOCLOPRAMIDE [Concomitant]
     Active Substance: METOCLOPRAMIDE
     Dosage: ONGOING = CHECKED
     Dates: start: 20190521
  35. QUETIAPINE [Concomitant]
     Active Substance: QUETIAPINE
     Dosage: ONGOING = CHECKED, PHARMACEUTICAL DOSE FORM (FREE TEXT): UNKNOWN
     Dates: start: 20210107
  36. LACTULOSE [Concomitant]
     Active Substance: LACTULOSE
     Dosage: ONGOING = CHECKED, PHARMACEUTICAL DOSE FORM (FREE TEXT): UNKNOWN
  37. KETOPROFEN [Concomitant]
     Active Substance: KETOPROFEN
     Dosage: ONGOING = CHECKED, PHARMACEUTICAL DOSE FORM (FREE TEXT): UNKNOWN
     Dates: start: 20200513
  38. OMEPRAZOLE [Concomitant]
     Active Substance: OMEPRAZOLE
     Dosage: ONGOING = CHECKED, PHARMACEUTICAL DOSE FORM (FREE TEXT): UNKNOWN
  39. DEXAMETHASONE [Concomitant]
     Active Substance: DEXAMETHASONE
     Dosage: ONGOING = CHECKED, PHARMACEUTICAL DOSE FORM (FREE TEXT): UNKNOWN
     Dates: start: 20201210

REACTIONS (4)
  - Palmar-plantar erythrodysaesthesia syndrome [Recovered/Resolved]
  - Neuropathy peripheral [Recovered/Resolved]
  - Onycholysis [Recovered/Resolved]
  - Overdose [Unknown]

NARRATIVE: CASE EVENT DATE: 20210429
